FAERS Safety Report 15215969 (Version 3)
Quarter: 2018Q3

REPORT INFORMATION
  Report Type: Report from Study
  Country: BR (occurrence: BR)
  Receive Date: 20180730
  Receipt Date: 20180815
  Transmission Date: 20181010
  Serious: Yes (Other)
  Sender: FDA-Public Use
  Company Number: BR-UCBSA-2018032866

PATIENT
  Sex: Male
  Weight: 106 kg

DRUGS (5)
  1. ESCITALOPRAM [Concomitant]
     Active Substance: ESCITALOPRAM OXALATE
     Indication: SLEEP DISORDER
     Dosage: 20 MG, ONCE DAILY (QD)
     Route: 048
     Dates: start: 20180524
  2. SERTRALINE [Suspect]
     Active Substance: SERTRALINE HYDROCHLORIDE
     Indication: SLEEP DISORDER
     Dosage: UNK UNK, ONCE DAILY (QD)
     Route: 048
     Dates: start: 201712, end: 201801
  3. LEVETIRACETAM. [Suspect]
     Active Substance: LEVETIRACETAM
     Dosage: 500 MG, 2X/DAY (BID)
     Route: 048
     Dates: start: 2017, end: 2017
  4. LEVETIRACETAM. [Suspect]
     Active Substance: LEVETIRACETAM
     Dosage: 250 MG, EV 2 WEEKS(QOW)
     Route: 048
     Dates: start: 2017
  5. LEVETIRACETAM. [Suspect]
     Active Substance: LEVETIRACETAM
     Indication: EPILEPSY
     Dosage: 250 MG, 2X/DAY (BID)
     Route: 048
     Dates: start: 2016, end: 2017

REACTIONS (12)
  - Nervousness [Not Recovered/Not Resolved]
  - Neck pain [Not Recovered/Not Resolved]
  - Libido decreased [Not Recovered/Not Resolved]
  - Seizure [Recovered/Resolved]
  - Intentional product misuse [Unknown]
  - Back pain [Not Recovered/Not Resolved]
  - Petit mal epilepsy [Recovered/Resolved]
  - Anxiety [Not Recovered/Not Resolved]
  - Aggression [Not Recovered/Not Resolved]
  - Memory impairment [Recovered/Resolved]
  - Weight increased [Not Recovered/Not Resolved]
  - Insomnia [Recovered/Resolved]

NARRATIVE: CASE EVENT DATE: 2016
